FAERS Safety Report 12586380 (Version 5)
Quarter: 2016Q4

REPORT INFORMATION
  Report Type: Report from Study
  Country: US (occurrence: US)
  Receive Date: 20160725
  Receipt Date: 20161021
  Transmission Date: 20170207
  Serious: No
  Sender: FDA-Public Use
  Company Number: US-ALEXION-A201605350

PATIENT
  Sex: Female

DRUGS (1)
  1. SOLIRIS [Suspect]
     Active Substance: ECULIZUMAB
     Indication: PAROXYSMAL NOCTURNAL HAEMOGLOBINURIA
     Dosage: UNK
     Route: 042

REACTIONS (6)
  - Palpitations [Not Recovered/Not Resolved]
  - Constipation [Unknown]
  - Cholelithiasis [Recovered/Resolved]
  - Heart rate irregular [Unknown]
  - Abdominal pain [Unknown]
  - Urinary tract infection [Unknown]
